FAERS Safety Report 13284315 (Version 1)
Quarter: 2017Q1

REPORT INFORMATION
  Report Type: Spontaneous
  Country: JP (occurrence: JP)
  Receive Date: 20170301
  Receipt Date: 20170301
  Transmission Date: 20170428
  Serious: Yes (Other)
  Sender: FDA-Public Use
  Company Number: JP-PFIZER INC-2017083985

PATIENT
  Age: 49 Year
  Sex: Female

DRUGS (9)
  1. CYCLOPHOSPHAMIDE. [Suspect]
     Active Substance: CYCLOPHOSPHAMIDE
     Indication: CHORIOCARCINOMA
     Dosage: 600 MG/M2, CYCLIC (DAY 8)
  2. METHOTREXATE SODIUM. [Suspect]
     Active Substance: METHOTREXATE SODIUM
     Indication: CHORIOCARCINOMA
     Dosage: 100 MG/M2, CYCLIC (DAY 1.)
  3. ETOPOSIDE. [Suspect]
     Active Substance: ETOPOSIDE
     Dosage: 100 MG/M2, CYCLIC (DAY 2)
  4. VINCRISTINE [Suspect]
     Active Substance: VINCRISTINE
     Indication: CHORIOCARCINOMA
     Dosage: 1 MG, CYCLIC (DAY 8)
  5. METHOTREXATE SODIUM. [Suspect]
     Active Substance: METHOTREXATE SODIUM
     Dosage: 200 MG/M2, CYCLIC (DAY 1, OVER 12 H.)
  6. LEUCOVORIN. [Suspect]
     Active Substance: LEUCOVORIN
     Indication: CHORIOCARCINOMA
     Dosage: 15 MG, 4X/DAY (DAY 2, 4 DOSES, 24 H AFTER THE FIRST METHOTREXATE DOSE)
  7. ETOPOSIDE. [Suspect]
     Active Substance: ETOPOSIDE
     Indication: CHORIOCARCINOMA
     Dosage: 100 MG/M2, CYCLIC (DAY 1)
  8. ACTINOMYCIN D [Suspect]
     Active Substance: DACTINOMYCIN
     Dosage: 0.5 MG, CYCLIC (DAY 2)
  9. ACTINOMYCIN D [Suspect]
     Active Substance: DACTINOMYCIN
     Indication: CHORIOCARCINOMA
     Dosage: 0.5 MG, CYCLIC (DAY 1)

REACTIONS (2)
  - Staphylococcal infection [Recovered/Resolved]
  - Endocarditis [Recovered/Resolved]
